FAERS Safety Report 7951829-4 (Version None)
Quarter: 2011Q4

REPORT INFORMATION
  Report Type: 
  Country: None (occurrence: None)
  Receive Date: 20111201
  Receipt Date: 20111128
  Transmission Date: 20120403
  Serious: Yes (Death, Hospitalization, Other)
  Sender: FDA-Public Use
  Company Number: US-PFIZER INC-2011271930

PATIENT
  Sex: Female

DRUGS (7)
  1. SUTENT [Suspect]
     Indication: METASTATIC RENAL CELL CARCINOMA
     Dosage: 37.5 MG, 1X/DAY
     Route: 048
     Dates: start: 20110929, end: 20111012
  2. CORTEF [Concomitant]
     Dosage: 10 MG, 1X/DAY
  3. OMEPRAZOLE [Concomitant]
     Dosage: 20 MG, 1X/DAY
  4. SUTENT [Suspect]
     Indication: BREAST CANCER
     Dosage: 50 MG, 1X/DAY
     Route: 048
     Dates: start: 20110628
  5. BYSTOLIC [Concomitant]
     Dosage: 10 MG, 1X/DAY
  6. FLORINEF [Concomitant]
     Dosage: 0.1 MG, 1X/DAY
  7. ACETYLSALICYLIC ACID [Concomitant]
     Dosage: 81 MG, 1X/DAY

REACTIONS (14)
  - DEATH [None]
  - LOSS OF CONSCIOUSNESS [None]
  - ELECTROCARDIOGRAM QT PROLONGED [None]
  - BLOOD CREATININE INCREASED [None]
  - DIASTOLIC DYSFUNCTION [None]
  - PANCYTOPENIA [None]
  - CARDIAC ARREST [None]
  - VENTRICULAR TACHYCARDIA [None]
  - HYPERTENSION [None]
  - PNEUMONIA ASPIRATION [None]
  - HYPOKALAEMIA [None]
  - HYPOMAGNESAEMIA [None]
  - CARDIAC FAILURE [None]
  - RENAL FAILURE [None]
